FAERS Safety Report 6384964-5 (Version None)
Quarter: 2009Q4

REPORT INFORMATION
  Report Type: 
  Country: None (occurrence: None)
  Receive Date: 20091002
  Receipt Date: 20090923
  Transmission Date: 20100525
  Serious: Yes (Other)
  Sender: FDA-Public Use
  Company Number: CH-ASTRAZENECA-2009SE14827

PATIENT
  Age: 42 Year
  Sex: Female

DRUGS (14)
  1. OMEPRAZOLE [Suspect]
     Route: 048
     Dates: start: 20081215, end: 20081218
  2. DIFLUCAN [Suspect]
     Route: 048
     Dates: start: 20081114
  3. DIFLUCAN [Suspect]
     Route: 048
     Dates: start: 20090729
  4. TEMODAL [Suspect]
     Route: 065
     Dates: start: 20081111, end: 20081209
  5. CLARITHROMYCIN [Suspect]
     Route: 041
     Dates: start: 20081218, end: 20081222
  6. BACTRIM DS [Suspect]
     Route: 048
     Dates: start: 20081111, end: 20081215
  7. TIENAM [Suspect]
     Route: 041
     Dates: start: 20081218, end: 20081230
  8. ZOFRAN [Suspect]
     Route: 048
     Dates: start: 20080830, end: 20081211
  9. DEXAMETHASONE [Concomitant]
  10. LYRICA [Concomitant]
     Route: 048
     Dates: start: 20081113
  11. NEXIUM [Concomitant]
  12. ACETAMINOPHEN [Concomitant]
     Route: 048
  13. CHEMOTHERAPHY [Concomitant]
     Dates: start: 20081111, end: 20081209
  14. TEMOZOLOMIDE [Concomitant]
     Dates: start: 20081111, end: 20081209

REACTIONS (1)
  - LIVER INJURY [None]
